FAERS Safety Report 6099610-8 (Version None)
Quarter: 2009Q1

REPORT INFORMATION
  Report Type: 
  Country: None (occurrence: None)
  Receive Date: 20090226
  Receipt Date: 20090216
  Transmission Date: 20090719
  Serious: Yes (Other)
  Sender: FDA-Public Use
  Company Number: 2009AP000558

PATIENT
  Sex: Female

DRUGS (4)
  1. CITALOPRAM HYDROBROMIDE [Suspect]
  2. PAROXETINE HYDROCHLORIDE [Suspect]
     Dosage: 20 MG; 30 MG, 15 MG QD, 30 MG QD
     Dates: start: 20010717
  3. PAROXETINE HYDROCHLORIDE [Suspect]
     Dosage: 20 MG; 30 MG, 15 MG QD, 30 MG QD
     Dates: start: 20011012
  4. PAROXETINE HYDROCHLORIDE [Suspect]
     Dosage: 20 MG; 30 MG, 15 MG QD, 30 MG QD
     Dates: start: 20011122

REACTIONS (11)
  - ABORTION INDUCED [None]
  - APATHY [None]
  - APPETITE DISORDER [None]
  - DRUG EXPOSURE DURING PREGNANCY [None]
  - DRUG WITHDRAWAL SYNDROME [None]
  - EMOTIONAL DISTRESS [None]
  - IRRITABILITY [None]
  - OVERDOSE [None]
  - SUICIDE ATTEMPT [None]
  - TEARFULNESS [None]
  - WEIGHT FLUCTUATION [None]
